FAERS Safety Report 7657942-3 (Version None)
Quarter: 2011Q3

REPORT INFORMATION
  Report Type: 
  Country: None (occurrence: None)
  Receive Date: 20110805
  Receipt Date: 20110726
  Transmission Date: 20111222
  Serious: No
  Sender: FDA-Public Use
  Company Number: US-BIOGENIDEC-2011BI027911

PATIENT
  Age: 42 Year
  Sex: Female

DRUGS (1)
  1. AVONEX [Suspect]
     Indication: MULTIPLE SCLEROSIS
     Route: 030
     Dates: start: 20110218

REACTIONS (6)
  - FEELING HOT [None]
  - SOMNOLENCE [None]
  - POLYMENORRHOEA [None]
  - TEMPERATURE INTOLERANCE [None]
  - FATIGUE [None]
  - MYALGIA [None]
